FAERS Safety Report 8035733-1 (Version None)
Quarter: 2012Q1

REPORT INFORMATION
  Report Type: 
  Country: None (occurrence: None)
  Receive Date: 20120111
  Receipt Date: 20120106
  Transmission Date: 20120608
  Serious: Yes (Hospitalization)
  Sender: FDA-Public Use
  Company Number: US-AMGEN-USASP2012000984

PATIENT
  Age: 77 Year
  Sex: Male

DRUGS (14)
  1. HUMALOG [Concomitant]
  2. ASPIRIN [Concomitant]
  3. LOPRESSOR [Concomitant]
  4. LOTREL [Concomitant]
  5. VOLTAREN [Concomitant]
  6. COUMADIN [Concomitant]
  7. MULTIVITAMIN                       /00097801/ [Concomitant]
  8. PRILOSEC [Concomitant]
  9. FOLIC ACID [Concomitant]
  10. FIBERCON [Concomitant]
  11. AMARYL [Concomitant]
  12. ARANESP [Suspect]
     Indication: LYMPHOMA
     Dosage: UNK UNK, QWK
  13. GLUCOPHAGE [Concomitant]
  14. ZOCOR [Concomitant]

REACTIONS (2)
  - CAROTID ARTERY STENOSIS [None]
  - CEREBRAL INFARCTION [None]
